FAERS Safety Report 6056922-1 (Version None)
Quarter: 2009Q1

REPORT INFORMATION
  Report Type: 
  Country: None (occurrence: None)
  Receive Date: 20090129
  Receipt Date: 20090127
  Transmission Date: 20090719
  Serious: Yes (Other)
  Sender: FDA-Public Use
  Company Number: D0060309A

PATIENT
  Age: 73 Year
  Sex: Female

DRUGS (1)
  1. ARIXTRA [Suspect]
     Indication: CATHETER THROMBOSIS
     Route: 065

REACTIONS (2)
  - HEPATIC FAILURE [None]
  - JAUNDICE [None]
